FAERS Safety Report 14634844 (Version 2)
Quarter: 2018Q1

REPORT INFORMATION
  Report Type: Spontaneous
  Country: IL (occurrence: IL)
  Receive Date: 20180314
  Receipt Date: 20180315
  Transmission Date: 20180509
  Serious: Yes (Other)
  Sender: FDA-Public Use
  Company Number: IL-009507513-1803ISR003861

PATIENT
  Age: 29 Year
  Sex: Female

DRUGS (1)
  1. KEYTRUDA [Suspect]
     Active Substance: PEMBROLIZUMAB
     Dosage: UNK
     Dates: start: 2018

REACTIONS (5)
  - Hypoparathyroidism [Recovering/Resolving]
  - Urine magnesium decreased [Unknown]
  - Urine phosphorus decreased [Unknown]
  - Quadriparesis [Recovering/Resolving]
  - Urine sodium decreased [Unknown]

NARRATIVE: CASE EVENT DATE: 2018
